FAERS Safety Report 19107169 (Version 1)
Quarter: 2021Q2

REPORT INFORMATION
  Report Type: Spontaneous
  Country: CN (occurrence: CN)
  Receive Date: 20210408
  Receipt Date: 20210408
  Transmission Date: 20210717
  Serious: Yes (Hospitalization, Other)
  Sender: FDA-Public Use
  Company Number: CN-GRANULES-CN-2021GRALIT00232

PATIENT
  Age: 31 Year
  Sex: Male

DRUGS (5)
  1. FASTIN [CLOTRIMAZOLE] [Interacting]
     Active Substance: CLOTRIMAZOLE
     Indication: PANCREATITIS ACUTE
     Route: 065
  2. IMMUNOGLOBULIN [IMMUNOGLOBULIN HUMAN NORMAL] [Interacting]
     Active Substance: HUMAN IMMUNOGLOBULIN G
     Indication: PANCREATITIS ACUTE
     Route: 042
  3. ACETAMINOPHEN. [Suspect]
     Active Substance: ACETAMINOPHEN
     Indication: PRODUCT USED FOR UNKNOWN INDICATION
     Route: 065
  4. OCTREOTIDE. [Interacting]
     Active Substance: OCTREOTIDE
     Indication: PANCREATITIS ACUTE
     Route: 065
  5. SULFONAMIDE [Suspect]
     Active Substance: UNSPECIFIED INGREDIENT
     Indication: PRODUCT USED FOR UNKNOWN INDICATION
     Route: 065

REACTIONS (2)
  - Pancreatitis acute [Recovered/Resolved]
  - Stevens-Johnson syndrome [Recovered/Resolved]
